FAERS Safety Report 9608060 (Version 1)
Quarter: 2013Q4

REPORT INFORMATION
  Report Type: Spontaneous
  Country: US (occurrence: None)
  Receive Date: 20131007
  Receipt Date: 20131007
  Transmission Date: 20140711
  Serious: Yes (Death)
  Sender: FDA-Public Use
  Company Number: None

PATIENT
  Sex: Male

DRUGS (3)
  1. ATOVAQUONE/ PROGVANIL [Suspect]
     Indication: MALARIA PROPHYLAXIS
     Dosage: 250/100
     Route: 048
  2. ONDANSTERON [Concomitant]
  3. AZITHROMYCIN [Concomitant]

REACTIONS (2)
  - Completed suicide [None]
  - Psychotic disorder [None]
